FAERS Safety Report 11726436 (Version 1)
Quarter: 2015Q4

REPORT INFORMATION
  Report Type: Spontaneous
  Country: US (occurrence: US)
  Receive Date: 20151110
  Receipt Date: 20151110
  Transmission Date: 20160304
  Serious: No
  Sender: FDA-Public Use
  Company Number: US-ELI_LILLY_AND_COMPANY-US201111002883

PATIENT
  Sex: Female

DRUGS (2)
  1. FORTEO [Suspect]
     Active Substance: TERIPARATIDE
     Indication: OSTEOPOROSIS
     Dosage: 20 UG, QD
     Dates: start: 201110
  2. PENICILLIN [Concomitant]
     Active Substance: PENICILLIN
     Indication: ENDODONTIC PROCEDURE

REACTIONS (8)
  - Pruritus [Unknown]
  - Burning sensation [Unknown]
  - Vulvovaginal discomfort [Unknown]
  - Peripheral swelling [Unknown]
  - Joint swelling [Unknown]
  - Fungal infection [Unknown]
  - Erythema [Recovered/Resolved]
  - Drug dose omission [Unknown]
